FAERS Safety Report 20765460 (Version 1)
Quarter: 2022Q2

REPORT INFORMATION
  Report Type: Spontaneous
  Country: US (occurrence: US)
  Receive Date: 20220428
  Receipt Date: 20220428
  Transmission Date: 20220721
  Serious: No
  Sender: FDA-Public Use
  Company Number: US-SA-SAC20220425000859

PATIENT
  Age: 49 Year
  Sex: Male

DRUGS (6)
  1. DUPIXENT [Suspect]
     Active Substance: DUPILUMAB
     Indication: Psoriasis
     Dosage: 300 MG QOW
     Route: 058
  2. DOXYCYCLINE HYCLATE [Concomitant]
     Active Substance: DOXYCYCLINE HYCLATE
  3. LISINOPRIL [Concomitant]
     Active Substance: LISINOPRIL
  4. CARVEDILOL [Concomitant]
     Active Substance: CARVEDILOL
  5. SKYRIZI [Concomitant]
     Active Substance: RISANKIZUMAB-RZAA
  6. MODERNA COVID-19 VACCINE [Concomitant]
     Active Substance: ELASOMERAN

REACTIONS (1)
  - Drug ineffective for unapproved indication [Unknown]
